FAERS Safety Report 10520781 (Version 1)
Quarter: 2014Q4

REPORT INFORMATION
  Report Type: Spontaneous
  Country: US (occurrence: US)
  Receive Date: 20141015
  Receipt Date: 20141015
  Transmission Date: 20150528
  Serious: Yes (Other)
  Sender: FDA-Public Use
  Company Number: US-ROCHE-1474828

PATIENT
  Age: 46 Year
  Sex: Male
  Weight: 83.99 kg

DRUGS (4)
  1. VYTORIN [Concomitant]
     Active Substance: EZETIMIBE\SIMVASTATIN
     Route: 048
  2. ACTEMRA [Suspect]
     Active Substance: TOCILIZUMAB
     Indication: RHEUMATOID ARTHRITIS
     Route: 042
     Dates: start: 201406, end: 20140731
  3. PREDNISONE. [Concomitant]
     Active Substance: PREDNISONE
     Route: 065
  4. VYTORIN [Concomitant]
     Active Substance: EZETIMIBE\SIMVASTATIN
     Route: 065

REACTIONS (5)
  - Transaminases increased [Unknown]
  - Headache [Unknown]
  - Leukopenia [Unknown]
  - Influenza like illness [Unknown]
  - Urticaria [Unknown]

NARRATIVE: CASE EVENT DATE: 20140801
